FAERS Safety Report 15681429 (Version 1)
Quarter: 2018Q4

REPORT INFORMATION
  Report Type: Spontaneous
  Country: JP (occurrence: JP)
  Receive Date: 20181203
  Receipt Date: 20181203
  Transmission Date: 20190205
  Serious: Yes (Other)
  Sender: FDA-Public Use
  Company Number: JP-009507513-1812JPN000585

PATIENT
  Age: 66 Year
  Sex: Male

DRUGS (1)
  1. GLACTIV [Suspect]
     Active Substance: SITAGLIPTIN
     Indication: TYPE 1 DIABETES MELLITUS
     Dosage: UNK
     Route: 048

REACTIONS (2)
  - Acromegaly [Unknown]
  - Off label use [Unknown]
